FAERS Safety Report 4695096-6 (Version None)
Quarter: 2005Q2

REPORT INFORMATION
  Report Type: 
  Country: None (occurrence: None)
  Receive Date: 20050617
  Receipt Date: 20050606
  Transmission Date: 20051028
  Serious: Yes (Life-Threatening, Hospitalization)
  Sender: FDA-Public Use
  Company Number: A125014

PATIENT
  Age: 75 Year
  Sex: Female

DRUGS (6)
  1. AMLODIPINE [Suspect]
     Indication: ANGINA PECTORIS
     Dates: start: 20010607
  2. DILTIAZEM [Suspect]
     Indication: ANGINA PECTORIS
     Dosage: 200 MG (DAILY), ORAL
     Route: 048
     Dates: start: 20010605, end: 20010607
  3. FUROSEMIDE [Concomitant]
  4. LORAZEPAM [Concomitant]
  5. GLYCERYL TRINITRATE (GLYCERYL TRINITRATE) [Concomitant]
  6. LEVOTHYROXINE SODIUM [Concomitant]

REACTIONS (1)
  - TOXIC EPIDERMAL NECROLYSIS [None]
